FAERS Safety Report 7003908-6 (Version None)
Quarter: 2010Q3

REPORT INFORMATION
  Report Type: 
  Country: None (occurrence: None)
  Receive Date: 20100920
  Receipt Date: 20100104
  Transmission Date: 20110219
  Serious: No
  Sender: FDA-Public Use
  Company Number: US-WYE-H12863910

PATIENT
  Age: 62 Year
  Sex: Male

DRUGS (3)
  1. PRISTIQ [Suspect]
     Indication: DEPRESSION
     Route: 048
     Dates: start: 20091204, end: 20091201
  2. PRISTIQ [Suspect]
     Dosage: ^1/2 TABLET DAILY^
     Route: 048
     Dates: start: 20091201
  3. PRISTIQ [Suspect]
     Dosage: ^1/2 TABLET EVERY OTHER DAY^
     Route: 048

REACTIONS (4)
  - BLISTER [None]
  - CHEST PAIN [None]
  - HYPOAESTHESIA [None]
  - RASH [None]
